FAERS Safety Report 13909118 (Version 2)
Quarter: 2018Q1

REPORT INFORMATION
  Report Type: Report from Study
  Country: IN (occurrence: IN)
  Receive Date: 20170828
  Receipt Date: 20180124
  Transmission Date: 20180508
  Serious: Yes (Death, Other)
  Sender: FDA-Public Use
  Company Number: IN-ROCHE-1981060

PATIENT
  Age: 60 Year
  Sex: Female

DRUGS (2)
  1. SOFOSBUVIR [Suspect]
     Active Substance: SOFOSBUVIR
     Indication: CHRONIC HEPATITIS C
     Route: 048
  2. RIBAVIRIN. [Suspect]
     Active Substance: RIBAVIRIN
     Indication: CHRONIC HEPATITIS C
     Dosage: 1000 MG/DAY (IF WEIGHT {75 KG) OR 1200 MG/DAY (IF WEIGHT }/=75 KG)
     Route: 048

REACTIONS (6)
  - Hepatic encephalopathy [Unknown]
  - Jaundice [Unknown]
  - Haemorrhage intracranial [Fatal]
  - Ascites [Unknown]
  - Hepatocellular carcinoma [Unknown]
  - Portal vein thrombosis [Unknown]
